FAERS Safety Report 8327097-0 (Version None)
Quarter: 2012Q2

REPORT INFORMATION
  Report Type: 
  Country: None (occurrence: None)
  Receive Date: 20120501
  Receipt Date: 20120220
  Transmission Date: 20120825
  Serious: Yes (Life-Threatening)
  Sender: FDA-Public Use
  Company Number: US-SANOFI-AVENTIS-2012SA011309

PATIENT
  Age: 64 Year
  Sex: Female
  Weight: 72.57 kg

DRUGS (2)
  1. DIOVAN HCT [Concomitant]
     Dosage: 160/12.5
     Dates: start: 20100101
  2. APIDRA [Suspect]
     Dosage: CONTINUOUS USE VIA PUMP (DOSE VARIES ACCORDING TO NUMBER OF CARBS EATEN AND PRESENT BG READING)
     Route: 058
     Dates: start: 20090101

REACTIONS (3)
  - BLOOD GLUCOSE INCREASED [None]
  - PRODUCT QUALITY ISSUE [None]
  - HYPOGLYCAEMIC UNCONSCIOUSNESS [None]
